FAERS Safety Report 20440603 (Version 1)
Quarter: 2022Q1

REPORT INFORMATION
  Report Type: Spontaneous
  Country: US (occurrence: US)
  Receive Date: 20220207
  Receipt Date: 20220207
  Transmission Date: 20220424
  Serious: No
  Sender: FDA-Public Use
  Company Number: US-CELGENE-USA-20220200111

PATIENT
  Sex: Female
  Weight: 71.732 kg

DRUGS (1)
  1. REVLIMID [Suspect]
     Active Substance: LENALIDOMIDE
     Indication: 5q minus syndrome
     Dosage: 7.5 MILLIGRAM
     Route: 048
     Dates: start: 20220122

REACTIONS (1)
  - Pruritus [Unknown]
